FAERS Safety Report 8595635-9 (Version None)
Quarter: 2012Q3

REPORT INFORMATION
  Report Type: 
  Country: None (occurrence: None)
  Receive Date: 20120815
  Receipt Date: 20120803
  Transmission Date: 20120928
  Serious: No
  Sender: FDA-Public Use
  Company Number: US-B.I. PHARMACEUTICALS,INC./RIDGEFIELD-2012-BP-17555BP

PATIENT
  Sex: Female

DRUGS (5)
  1. LORTAB [Concomitant]
     Indication: NECK PAIN
     Dosage: (TABLET)
     Route: 048
  2. LORTAB [Concomitant]
     Indication: BACK PAIN
  3. SLEEP AIDE [Concomitant]
     Indication: INSOMNIA
     Dates: start: 20110101
  4. XANAX [Concomitant]
     Indication: NERVOUSNESS
     Route: 048
  5. SPIRIVA [Suspect]
     Indication: EMPHYSEMA
     Dosage: 18 MCG
     Route: 055
     Dates: start: 20070101

REACTIONS (2)
  - INSOMNIA [None]
  - DYSPNOEA [None]
